FAERS Safety Report 8197731-7 (Version None)
Quarter: 2012Q1

REPORT INFORMATION
  Report Type: 
  Country: None (occurrence: None)
  Receive Date: 20120309
  Receipt Date: 20120228
  Transmission Date: 20120608
  Serious: Yes (Other)
  Sender: FDA-Public Use
  Company Number: US-JNJFOC-20120214393

PATIENT
  Sex: Female
  Weight: 49.9 kg

DRUGS (4)
  1. REMICADE [Suspect]
     Indication: CROHN'S DISEASE
     Route: 042
  2. AMBIEN [Concomitant]
     Indication: SLEEP DISORDER
     Route: 048
  3. REMICADE [Suspect]
     Route: 042
     Dates: start: 20111207
  4. ORTHO TRI-CYCLEN [Concomitant]
     Indication: CONTRACEPTION
     Route: 048

REACTIONS (5)
  - ANIMAL BITE [None]
  - WOUND [None]
  - HAEMOGLOBIN DECREASED [None]
  - ADVERSE DRUG REACTION [None]
  - RABIES [None]
